FAERS Safety Report 5816920-7 (Version None)
Quarter: 2008Q3

REPORT INFORMATION
  Report Type: 
  Country: None (occurrence: None)
  Receive Date: 20080722
  Receipt Date: 20080707
  Transmission Date: 20090109
  Serious: Yes (Hospitalization)
  Sender: FDA-Public Use
  Company Number: FR-BAYER-200821775GPV

PATIENT
  Age: 68 Year
  Sex: Female

DRUGS (5)
  1. CIFLOX [Suspect]
     Indication: OSTEITIS
     Route: 048
     Dates: start: 20080214, end: 20080221
  2. ROCEPHIN [Concomitant]
     Indication: BRONCHITIS
     Route: 065
     Dates: start: 20080221
  3. FLAGYL [Concomitant]
     Indication: BRONCHITIS
     Route: 065
     Dates: start: 20080221
  4. BACTRIM [Concomitant]
     Indication: OSTEITIS
     Route: 065
     Dates: start: 20080214, end: 20080221
  5. PYOSTACINE [Concomitant]
     Indication: OSTEITIS
     Route: 065
     Dates: start: 20080201

REACTIONS (1)
  - PURPURA [None]
